FAERS Safety Report 7797974-8 (Version None)
Quarter: 2011Q4

REPORT INFORMATION
  Report Type: 
  Country: None (occurrence: None)
  Receive Date: 20111005
  Receipt Date: 20111003
  Transmission Date: 20120403
  Serious: Yes (Hospitalization)
  Sender: FDA-Public Use
  Company Number: FR-GLAXOSMITHKLINE-B0693700A

PATIENT
  Sex: Male

DRUGS (14)
  1. ABACAVIR [Concomitant]
     Indication: HIV INFECTION
     Route: 048
  2. EPIVIR [Concomitant]
     Indication: HIV INFECTION
     Route: 048
  3. TRUVADA [Suspect]
     Indication: HIV INFECTION
     Dosage: 1TAB PER DAY
     Route: 048
     Dates: start: 20101214, end: 20101221
  4. CRESTOR [Concomitant]
     Route: 048
  5. LOSARTAN POTASSIUM AND HYDROCHLOROTHIAZIDE [Concomitant]
     Dosage: 1UNIT PER DAY
     Route: 048
     Dates: start: 20060101, end: 20101228
  6. INNOHEP [Concomitant]
     Dosage: .9ML SINGLE DOSE
     Route: 058
     Dates: start: 20101210, end: 20101228
  7. AUGMENTIN '125' [Suspect]
     Indication: BRONCHITIS
     Route: 048
     Dates: start: 20101220, end: 20101228
  8. PREDNISOLONE [Concomitant]
     Indication: NASAL POLYPS
     Route: 065
     Dates: start: 20101110
  9. NASACORT [Concomitant]
     Indication: NASAL POLYPS
     Route: 065
     Dates: start: 20101110
  10. AMLODIPINE BESYLATE [Concomitant]
     Route: 065
  11. LASIX [Concomitant]
     Route: 065
     Dates: start: 20101201
  12. CALCIPARINE [Concomitant]
     Route: 065
  13. NORVIR [Concomitant]
     Indication: HIV INFECTION
     Route: 048
  14. REYATAZ [Concomitant]
     Indication: HIV INFECTION
     Route: 048

REACTIONS (2)
  - RENAL FAILURE [None]
  - OEDEMA PERIPHERAL [None]
